FAERS Safety Report 8452740-5 (Version None)
Quarter: 2012Q2

REPORT INFORMATION
  Report Type: 
  Country: None (occurrence: None)
  Receive Date: 20120620
  Receipt Date: 20120424
  Transmission Date: 20120825
  Serious: No
  Sender: FDA-Public Use
  Company Number: US-VERTEX PHARMACEUTICALS INC.-AE-2012-005890

PATIENT
  Sex: Male
  Weight: 127.12 kg

DRUGS (8)
  1. RIBAVIRIN [Concomitant]
     Indication: HEPATITIS C
     Route: 048
     Dates: start: 20120413
  2. FENTYL PATCH [Concomitant]
     Indication: PAIN
     Route: 061
  3. NADOLOL [Concomitant]
     Indication: HYPERTENSION
     Route: 048
  4. NORCO [Concomitant]
     Indication: PAIN
     Route: 048
  5. SPIRONOLACTONE [Concomitant]
     Route: 048
  6. INCIVEK [Suspect]
     Indication: HEPATITIS C
     Route: 048
     Dates: start: 20120413
  7. PEGASYS [Concomitant]
     Indication: HEPATITIS C
     Route: 058
     Dates: start: 20120413
  8. MULTI-VITAMIN [Concomitant]
     Indication: MEDICAL DIET
     Route: 048

REACTIONS (7)
  - MENTAL IMPAIRMENT [None]
  - VOMITING [None]
  - URINE COLOUR ABNORMAL [None]
  - DEHYDRATION [None]
  - TREMOR [None]
  - NAUSEA [None]
  - INCORRECT DRUG ADMINISTRATION DURATION [None]
